FAERS Safety Report 21087053 (Version 2)
Quarter: 2022Q3

REPORT INFORMATION
  Report Type: Spontaneous
  Country: US (occurrence: US)
  Receive Date: 20220715
  Receipt Date: 20220723
  Transmission Date: 20221027
  Serious: No
  Sender: FDA-Public Use
  Company Number: US-BRISTOL-MYERS SQUIBB COMPANY-2022-067115

PATIENT
  Age: 70 Year
  Sex: Male
  Weight: 90.72 kg

DRUGS (1)
  1. REVLIMID [Suspect]
     Active Substance: LENALIDOMIDE
     Indication: Plasma cell myeloma
     Dosage: FREQ- D 1-14 Q 21 DAYS?FREQ- DAYS 1-21 Q 28 DAY?LOT : A3276A WITH EXPIRY DATE 31.JAN.23
     Route: 048
     Dates: start: 20220225

REACTIONS (2)
  - Rash [Recovering/Resolving]
  - Oedema [Unknown]
